FAERS Safety Report 8290335-7 (Version None)
Quarter: 2012Q2

REPORT INFORMATION
  Report Type: 
  Country: None (occurrence: None)
  Receive Date: 20120412
  Receipt Date: 20120412
  Transmission Date: 20120825
  Serious: Yes (Hospitalization)
  Sender: FDA-Public Use
  Company Number: None

PATIENT
  Age: 62 Year
  Sex: Male
  Weight: 96.7522 kg

DRUGS (15)
  1. ASPIRIN [Concomitant]
  2. MULTI-VITAMIN [Concomitant]
  3. OMEPRAZOLE [Concomitant]
  4. REVLIMID [Concomitant]
  5. VALACYCLOVIR [Concomitant]
  6. MELATONIN [Concomitant]
  7. ONDANSETRON [Concomitant]
  8. NAPROXEN [Concomitant]
  9. VICODIN [Concomitant]
  10. VITAMIN B-12 [Concomitant]
  11. DEXAMETHASONE [Concomitant]
  12. BORTEZOMIB [Suspect]
     Indication: MULTIPLE MYELOMA
     Dosage: 2.73 MG DAY1, 4, 8,11 IVP
     Dates: start: 20120327, end: 20120406
  13. FERROUS SULFATE TAB [Concomitant]
  14. DOCUSTATE SODIUM [Concomitant]
  15. GABAPENTIN [Concomitant]

REACTIONS (8)
  - PARAESTHESIA [None]
  - CONSTIPATION [None]
  - PRESYNCOPE [None]
  - ARTHRALGIA [None]
  - FLANK PAIN [None]
  - HYPOAESTHESIA [None]
  - JOINT SWELLING [None]
  - MOBILITY DECREASED [None]
